FAERS Safety Report 23628156 (Version 1)
Quarter: 2024Q1

REPORT INFORMATION
  Report Type: Spontaneous
  Country: RS (occurrence: RS)
  Receive Date: 20240313
  Receipt Date: 20240313
  Transmission Date: 20240410
  Serious: Yes (Other)
  Sender: FDA-Public Use
  Company Number: RS-AMGEN-SRBSP2024048846

PATIENT
  Age: 65 Year
  Sex: Male

DRUGS (4)
  1. VECTIBIX [Suspect]
     Active Substance: PANITUMUMAB
     Indication: Colon cancer
     Dosage: UNK, CYCLICAL, 4 CYCLES
     Route: 065
     Dates: start: 2021, end: 2022
  2. VECTIBIX [Suspect]
     Active Substance: PANITUMUMAB
     Dosage: UNK, CYCLICAL, 4 CYCLES
     Route: 065
     Dates: start: 202209
  3. CAPECITABINE [Suspect]
     Active Substance: CAPECITABINE
     Indication: Colon cancer
     Dosage: UNK, CYCLICAL, 4 CYCLES
     Route: 065
     Dates: start: 2021
  4. OXALIPLATIN [Suspect]
     Active Substance: OXALIPLATIN
     Indication: Colon cancer
     Dosage: UNK, CYCLICAL, 4 CYCLES
     Route: 065
     Dates: start: 2021

REACTIONS (4)
  - Colon cancer metastatic [Unknown]
  - Metastases to liver [Unknown]
  - Therapy partial responder [Unknown]
  - Off label use [Unknown]

NARRATIVE: CASE EVENT DATE: 20210101
